FAERS Safety Report 18575868 (Version 3)
Quarter: 2021Q1

REPORT INFORMATION
  Report Type: Report from Study
  Country: None (occurrence: US)
  Receive Date: 20201203
  Receipt Date: 20210301
  Transmission Date: 20210419
  Serious: Yes (Hospitalization, Other)
  Sender: FDA-Public Use
  Company Number: US-ABBVIE-20K-163-3669936-00

PATIENT
  Age: 85 Year
  Sex: Female
  Weight: 49.49 kg

DRUGS (2)
  1. HUMIRA [Suspect]
     Active Substance: ADALIMUMAB
     Indication: COLITIS ULCERATIVE
     Route: 058
     Dates: start: 201011
  2. HUMIRA [Suspect]
     Active Substance: ADALIMUMAB
     Route: 058

REACTIONS (11)
  - Decreased appetite [Not Recovered/Not Resolved]
  - Internal haemorrhage [Unknown]
  - Colitis ulcerative [Not Recovered/Not Resolved]
  - Blood viscosity decreased [Recovered/Resolved]
  - Hiatus hernia [Unknown]
  - Paranasal sinus hypersecretion [Not Recovered/Not Resolved]
  - Foot fracture [Recovering/Resolving]
  - Hypersensitivity [Not Recovered/Not Resolved]
  - Sepsis [Recovered/Resolved]
  - Pneumonia [Recovered/Resolved]
  - Knee arthroplasty [Recovered/Resolved]

NARRATIVE: CASE EVENT DATE: 2019
